FAERS Safety Report 19978935 (Version 1)
Quarter: 2021Q4

REPORT INFORMATION
  Report Type: Spontaneous
  Country: US (occurrence: US)
  Receive Date: 20211020
  Receipt Date: 20211020
  Transmission Date: 20220303
  Serious: Yes (Death)
  Sender: FDA-Public Use
  Company Number: None

PATIENT
  Age: 76 Year
  Sex: Male

DRUGS (17)
  1. ESBRIET [Suspect]
     Active Substance: PIRFENIDONE
     Indication: Idiopathic pulmonary fibrosis
     Route: 048
     Dates: start: 20210102, end: 20211013
  2. CALCIUM [Concomitant]
     Active Substance: CALCIUM
  3. CHLOROQUINE [Concomitant]
     Active Substance: CHLOROQUINE
  4. CYCLOBENZAPRINE [Concomitant]
     Active Substance: CYCLOBENZAPRINE
  5. FINASTERIDE [Concomitant]
     Active Substance: FINASTERIDE
  6. FLUOXETINE [Concomitant]
     Active Substance: FLUOXETINE HYDROCHLORIDE
  7. IBUPROFEN [Concomitant]
     Active Substance: IBUPROFEN
  8. KRILL OIL [Concomitant]
     Active Substance: DIETARY SUPPLEMENT\KRILL OIL
  9. LIPITOR [Concomitant]
     Active Substance: ATORVASTATIN CALCIUM
  10. LOSARTAN [Concomitant]
     Active Substance: LOSARTAN
  11. MELOXICAM [Concomitant]
     Active Substance: MELOXICAM
  12. OMEPRAZOLE [Concomitant]
     Active Substance: OMEPRAZOLE
  13. TAMSULOSIN [Concomitant]
     Active Substance: TAMSULOSIN
  14. TOLTERODINE [Concomitant]
     Active Substance: TOLTERODINE
  15. HYDROCHLOROTHIAZIDE\TRIAMTERENE [Concomitant]
     Active Substance: HYDROCHLOROTHIAZIDE\TRIAMTERENE
  16. VITAMIN B12 [Concomitant]
     Active Substance: CYANOCOBALAMIN
  17. VITAMIN D3 [Concomitant]
     Active Substance: CHOLECALCIFEROL

REACTIONS (1)
  - Death [None]
